FAERS Safety Report 5221019-7 (Version None)
Quarter: 2007Q1

REPORT INFORMATION
  Report Type: 
  Country: None (occurrence: None)
  Receive Date: 20070123
  Receipt Date: 20070117
  Transmission Date: 20070707
  Serious: Yes (Death, Other)
  Sender: FDA-Public Use
  Company Number: 056-C5013-07010797

PATIENT
  Age: 72 Year
  Sex: Male

DRUGS (3)
  1. CC-5013 (LENALIDOMIDE) (CAPSULES) [Suspect]
     Indication: MULTIPLE MYELOMA
     Dosage: 25 MG, 1 IN 1 D, PER ORAL; 15 MG, 1 IN 1 D, PER ORAL
     Route: 048
     Dates: start: 20060615, end: 20060701
  2. CC-5013 (LENALIDOMIDE) (CAPSULES) [Suspect]
     Indication: MULTIPLE MYELOMA
     Dosage: 25 MG, 1 IN 1 D, PER ORAL; 15 MG, 1 IN 1 D, PER ORAL
     Route: 048
     Dates: start: 20060804, end: 20060927
  3. AVK (DICOUMAROL) [Concomitant]

REACTIONS (5)
  - EMBOLISM [None]
  - NEUTROPENIA [None]
  - PLASMACYTOSIS [None]
  - SUDDEN DEATH [None]
  - THROMBOCYTOPENIA [None]
